FAERS Safety Report 7402737-9 (Version None)
Quarter: 2011Q2

REPORT INFORMATION
  Report Type: 
  Country: None (occurrence: None)
  Receive Date: 20110408
  Receipt Date: 20110328
  Transmission Date: 20111010
  Serious: Yes (Life-Threatening)
  Sender: FDA-Public Use
  Company Number: JP-ROCHE-764626

PATIENT
  Sex: Female
  Weight: 52 kg

DRUGS (5)
  1. XELODA [Suspect]
     Route: 048
     Dates: start: 20100720, end: 20101005
  2. XELODA [Suspect]
     Indication: RECTAL CANCER RECURRENT
     Route: 048
     Dates: start: 20091216, end: 20100127
  3. XELODA [Suspect]
     Route: 048
     Dates: start: 20101012, end: 20110127
  4. XELODA [Suspect]
     Route: 048
     Dates: start: 20100518, end: 20100629
  5. AVASTIN [Suspect]
     Indication: RECTAL CANCER RECURRENT
     Route: 041
     Dates: start: 20100518, end: 20110113

REACTIONS (4)
  - CEREBRAL HAEMORRHAGE [None]
  - METASTASES TO CENTRAL NERVOUS SYSTEM [None]
  - HYPERBILIRUBINAEMIA [None]
  - RESPIRATORY TRACT IRRITATION [None]
